FAERS Safety Report 25907358 (Version 1)
Quarter: 2025Q4

REPORT INFORMATION
  Report Type: Spontaneous
  Country: US (occurrence: US)
  Receive Date: 20251010
  Receipt Date: 20251010
  Transmission Date: 20260117
  Serious: No
  Sender: GRIFOLS
  Company Number: US-IGSA-BIG0038605

PATIENT
  Age: 17 Year
  Sex: Female
  Weight: 68.9 kg

DRUGS (5)
  1. GAMUNEX-C [Suspect]
     Active Substance: HUMAN IMMUNOGLOBULIN G
     Indication: Dermatomyositis
     Dosage: 100 GRAM, Q.6WK.
     Route: 042
     Dates: start: 20251004
  2. GAMUNEX-C [Suspect]
     Active Substance: HUMAN IMMUNOGLOBULIN G
     Indication: Myopathy
  3. GAMUNEX-C [Suspect]
     Active Substance: HUMAN IMMUNOGLOBULIN G
     Indication: Off label use
  4. TYLENOL [Concomitant]
     Active Substance: ACETAMINOPHEN
     Indication: Premedication
     Dosage: 325 MILLIGRAM
     Route: 048
  5. DIPHENHYDRAMINE [Concomitant]
     Active Substance: DIPHENHYDRAMINE
     Indication: Premedication
     Dosage: 25 MILLIGRAM
     Route: 048

REACTIONS (2)
  - Pruritus [Recovered/Resolved]
  - Urticaria [Recovered/Resolved]

NARRATIVE: CASE EVENT DATE: 20251004
